FAERS Safety Report 9116876 (Version 1)
Quarter: 2013Q1

REPORT INFORMATION
  Report Type: Report from Study
  Country: FR (occurrence: FR)
  Receive Date: 20130225
  Receipt Date: 20130225
  Transmission Date: 20140127
  Serious: Yes (Hospitalization, Other)
  Sender: FDA-Public Use
  Company Number: PHHY2013FR016768

PATIENT
  Age: 61 Year
  Sex: Male
  Weight: 84 kg

DRUGS (7)
  1. GLIVEC [Suspect]
     Indication: CHRONIC MYELOID LEUKAEMIA
     Dosage: UNK UKN, UNK
     Route: 048
     Dates: start: 20060606
  2. LASILIX [Concomitant]
     Dosage: 40 MG, DAILY
  3. LERCAN [Concomitant]
     Dosage: 20 MG, DAILY
  4. TRIATEC [Concomitant]
     Dosage: 1.25 MG, UNK
  5. DIAMICRON [Concomitant]
  6. KALEORID [Concomitant]
  7. PARIET [Concomitant]

REACTIONS (15)
  - Cardiac failure [Not Recovered/Not Resolved]
  - Bundle branch block right [Unknown]
  - Bundle branch block left [Unknown]
  - Atrioventricular block first degree [Unknown]
  - Congestive cardiomyopathy [Unknown]
  - Dilatation ventricular [Unknown]
  - Ejection fraction decreased [Unknown]
  - Left ventricular end-diastolic pressure increased [Unknown]
  - Arteriosclerosis [Unknown]
  - Lymphadenopathy mediastinal [Unknown]
  - Pleural effusion [Unknown]
  - Oedema peripheral [Unknown]
  - Pulmonary hypertension [Unknown]
  - Left ventricular failure [Unknown]
  - Dyspnoea exertional [Unknown]
